FAERS Safety Report 7546248-9 (Version None)
Quarter: 2011Q2

REPORT INFORMATION
  Report Type: 
  Country: None (occurrence: None)
  Receive Date: 20110614
  Receipt Date: 20040520
  Transmission Date: 20111010
  Serious: Yes (Hospitalization)
  Sender: FDA-Public Use
  Company Number: PHFR2004GB01664

PATIENT
  Sex: Female

DRUGS (4)
  1. HALOPERIDOL [Concomitant]
     Indication: SCHIZOPHRENIA
     Dosage: 4 MG, BID
     Route: 048
     Dates: start: 20031001
  2. CLOZAPINE [Suspect]
     Indication: SCHIZOPHRENIA
     Dosage: 100 MG/DAY
     Route: 048
     Dates: start: 20040318, end: 20040331
  3. OLANZAPINE [Concomitant]
     Indication: SCHIZOPHRENIA
     Route: 048
     Dates: start: 20031101, end: 20040401
  4. CITALOPRAM [Concomitant]
     Dosage: 10 MG, UNK

REACTIONS (5)
  - CHRONIC OBSTRUCTIVE PULMONARY DISEASE [None]
  - RESPIRATORY FAILURE [None]
  - RESPIRATORY DEPRESSION [None]
  - LOWER RESPIRATORY TRACT INFECTION [None]
  - ASCITES [None]
